FAERS Safety Report 19027101 (Version 1)
Quarter: 2021Q1

REPORT INFORMATION
  Report Type: Other
  Country: US (occurrence: US)
  Receive Date: 20210318
  Receipt Date: 20210318
  Transmission Date: 20210420
  Serious: Yes (Hospitalization, Other)
  Sender: FDA-Public Use
  Company Number: US-ROCHE-2750590

PATIENT
  Age: 7 Year
  Sex: Male
  Weight: 18.6 kg

DRUGS (15)
  1. LASIX [Concomitant]
     Active Substance: FUROSEMIDE
  2. MIRALAX [Concomitant]
     Active Substance: POLYETHYLENE GLYCOL 3350
     Dosage: AS NEEDED
  3. SENOKOT [Concomitant]
     Active Substance: SENNOSIDES
     Dosage: AS NEEDED
  4. ENALAPRIL [Concomitant]
     Active Substance: ENALAPRIL
  5. VITAMIN D3 [Concomitant]
     Active Substance: CHOLECALCIFEROL
     Dosage: 2000 UNITS DAILY
     Route: 048
  6. PULMICORT RESPULES [Concomitant]
     Active Substance: BUDESONIDE
     Dosage: NEB SOLUTION
  7. RITUXIMAB. [Suspect]
     Active Substance: RITUXIMAB
     Indication: EXTRANODAL MARGINAL ZONE B-CELL LYMPHOMA (MALT TYPE)
     Dosage: COMPLETED 3 CYCLES
     Route: 042
     Dates: start: 20190304, end: 20190415
  8. REVATIO [Concomitant]
     Active Substance: SILDENAFIL CITRATE
     Route: 048
  9. BUDESONIDE. [Concomitant]
     Active Substance: BUDESONIDE
  10. ASPIRIN. [Concomitant]
     Active Substance: ASPIRIN
  11. FERROUS SULFATE. [Concomitant]
     Active Substance: FERROUS SULFATE
  12. PRILOSEC [Concomitant]
     Active Substance: OMEPRAZOLE MAGNESIUM
  13. SILDENAFIL. [Concomitant]
     Active Substance: SILDENAFIL
  14. FUROSEMIDE. [Concomitant]
     Active Substance: FUROSEMIDE
  15. ACETAMINOPHEN. [Concomitant]
     Active Substance: ACETAMINOPHEN

REACTIONS (3)
  - Toxic shock syndrome [Unknown]
  - Cellulitis streptococcal [Unknown]
  - Clostridium difficile colitis [Unknown]

NARRATIVE: CASE EVENT DATE: 20190422
